FAERS Safety Report 24049564 (Version 2)
Quarter: 2024Q3

REPORT INFORMATION
  Report Type: Report from Study
  Country: US (occurrence: US)
  Receive Date: 20240704
  Receipt Date: 20240709
  Transmission Date: 20241017
  Serious: Yes (Hospitalization, Other)
  Sender: ABBVIE
  Company Number: US-ABBVIE-5825895

PATIENT
  Sex: Male
  Weight: 88.9 kg

DRUGS (11)
  1. CREON [Suspect]
     Active Substance: PANCRELIPASE AMYLASE\PANCRELIPASE LIPASE\PANCRELIPASE PROTEASE
     Indication: Product used for unknown indication
     Dosage: FORM STRENGTH: 24000 MICROGRAM
     Route: 048
     Dates: start: 20240629, end: 20240703
  2. CREON [Suspect]
     Active Substance: PANCRELIPASE AMYLASE\PANCRELIPASE LIPASE\PANCRELIPASE PROTEASE
     Indication: Product used for unknown indication
     Dosage: LAST ADMIN IN JUN 2024
     Route: 048
     Dates: start: 20240612
  3. LACTULOSE [Concomitant]
     Active Substance: LACTULOSE
     Indication: Pain
  4. PHOSPHORUS [Concomitant]
     Active Substance: PHOSPHORUS
     Indication: Supplementation therapy
     Dosage: PHOSPHORUS SHOT
  5. REGLAN [Concomitant]
     Active Substance: METOCLOPRAMIDE HYDROCHLORIDE
     Indication: Product used for unknown indication
  6. PREGABALIN [Concomitant]
     Active Substance: PREGABALIN
     Indication: Neuropathy peripheral
  7. VITAMIN B12 [Concomitant]
     Active Substance: CYANOCOBALAMIN
     Indication: Vitamin supplementation
  8. CELEBREX [Concomitant]
     Active Substance: CELECOXIB
     Indication: Arthritis
  9. POTASSIUM [Concomitant]
     Active Substance: POTASSIUM
     Indication: Mineral supplementation
     Dosage: POTASSIUM SHOT
  10. PEPCID [Concomitant]
     Active Substance: FAMOTIDINE
     Indication: Pain
  11. VITAMIN C [Concomitant]
     Active Substance: ASCORBIC ACID
     Indication: Vitamin supplementation

REACTIONS (7)
  - Small intestinal obstruction [Recovered/Resolved]
  - Malnutrition [Recovering/Resolving]
  - Platelet count decreased [Recovering/Resolving]
  - Haematocrit decreased [Recovering/Resolving]
  - Red blood cell count decreased [Recovering/Resolving]
  - Abnormal faeces [Recovering/Resolving]
  - Postoperative wound infection [Recovering/Resolving]

NARRATIVE: CASE EVENT DATE: 20240101
